FAERS Safety Report 7911748-6 (Version None)
Quarter: 2011Q4

REPORT INFORMATION
  Report Type: 
  Country: None (occurrence: None)
  Receive Date: 20111114
  Receipt Date: 20111114
  Transmission Date: 20120403
  Serious: Yes (Other)
  Sender: FDA-Public Use
  Company Number: None

PATIENT
  Age: 73 Year
  Sex: Female
  Weight: 63.8 kg

DRUGS (6)
  1. SYNTHROID [Concomitant]
     Route: 048
  2. NORVASC [Concomitant]
     Route: 048
  3. ASPIRIN [Concomitant]
     Route: 048
  4. CALCIUM [Concomitant]
     Route: 048
  5. PEMETREXED [Suspect]
     Indication: LUNG ADENOCARCINOMA
     Dosage: 500 MG/M2
     Route: 042
     Dates: start: 20110314, end: 20110630
  6. MULTI-VITAMIN [Concomitant]
     Route: 048

REACTIONS (1)
  - PULMONARY EMBOLISM [None]
